FAERS Safety Report 9014564 (Version 1)
Quarter: 2013Q1

REPORT INFORMATION
  Report Type: Spontaneous
  Country: US (occurrence: US)
  Receive Date: 20130115
  Receipt Date: 20130115
  Transmission Date: 20140127
  Serious: Yes (Other)
  Sender: FDA-Public Use
  Company Number: US-009507513-1301USA003595

PATIENT
  Sex: Female

DRUGS (5)
  1. SINGULAIR [Suspect]
     Indication: PRODUCT USED FOR UNKNOWN INDICATION
  2. PLAVIX [Suspect]
  3. LIPITOR [Suspect]
  4. RANITIDINE HYDROCHLORIDE [Suspect]
  5. METOPROLOL TARTRATE [Suspect]

REACTIONS (2)
  - Myocardial infarction [Unknown]
  - Crohn^s disease [Unknown]
